FAERS Safety Report 5000555-2 (Version None)
Quarter: 2006Q2

REPORT INFORMATION
  Report Type: 
  Country: None (occurrence: None)
  Receive Date: 20060512
  Receipt Date: 20051214
  Transmission Date: 20061013
  Serious: No
  Sender: FDA-Public Use
  Company Number: US-BRISTOL-MYERS SQUIBB COMPANY-13221940

PATIENT
  Age: 70 Year
  Sex: Male
  Weight: 86 kg

DRUGS (15)
  1. CYTOXAN [Suspect]
     Indication: CHRONIC LYMPHOCYTIC LEUKAEMIA
     Route: 042
  2. RITUXAN [Concomitant]
     Indication: CHRONIC LYMPHOCYTIC LEUKAEMIA
  3. VINCRISTINE [Concomitant]
     Indication: CHRONIC LYMPHOCYTIC LEUKAEMIA
  4. PREDNISONE TAB [Concomitant]
     Indication: CHRONIC LYMPHOCYTIC LEUKAEMIA
  5. IMMUNE GLOBULIN INTRAVENOUS (HUMAN) [Concomitant]
  6. VERAPAMIL [Concomitant]
  7. NADOLOL [Concomitant]
  8. LANOXIN [Concomitant]
  9. LESCOL [Concomitant]
  10. TERAZOSIN HCL [Concomitant]
  11. SYNTHROID [Concomitant]
  12. ADVAIR DISKUS 100/50 [Concomitant]
  13. SINGULAIR [Concomitant]
  14. MULTIVITAMIN [Concomitant]
  15. ASPIRIN [Concomitant]

REACTIONS (1)
  - MASTOIDITIS [None]
